FAERS Safety Report 10749299 (Version 1)
Quarter: 2015Q1

REPORT INFORMATION
  Report Type: Report from Study
  Country: US (occurrence: US)
  Receive Date: 20150129
  Receipt Date: 20150129
  Transmission Date: 20150721
  Serious: Yes (Hospitalization, Other)
  Sender: FDA-Public Use
  Company Number: US-AMGEN-2012-0333

PATIENT
  Sex: Female
  Weight: 52.6 kg

DRUGS (36)
  1. OXYCODONE HCL [Concomitant]
     Active Substance: OXYCODONE HYDROCHLORIDE
     Indication: PAIN
     Dosage: FREQ. TEXT: 1 TAB EVERY 4 HOURS
     Route: 048
  2. AMBIEN [Concomitant]
     Active Substance: ZOLPIDEM TARTRATE
     Indication: INSOMNIA
     Dosage: FREQ. TEXT: 1 TAB AT BEDTIME
     Route: 048
  3. NEUPOGEN [Concomitant]
     Active Substance: FILGRASTIM
     Dosage: FREQUENCY:  EVERY 1 ; FREQ. TEXT: QD UNTIL WBC }2 X 48 HRS
     Route: 058
     Dates: start: 20110404, end: 20110423
  4. ACYCLOVIR. [Concomitant]
     Active Substance: ACYCLOVIR
     Route: 048
  5. CARFILZOMIB [Suspect]
     Active Substance: CARFILZOMIB
     Indication: PLASMA CELL MYELOMA
     Dosage: FREQ. TEXT: DAYS 1, 2
     Route: 042
     Dates: start: 20110128
  6. CARFILZOMIB [Suspect]
     Active Substance: CARFILZOMIB
     Dosage: FREQUENCY: 6 EVERY 28 DAYS; FREQ. TEXT: DAYS 1, 2, 8, 9, 15, 16
     Route: 042
     Dates: start: 20110226, end: 20110305
  7. LORAZEPAM. [Concomitant]
     Active Substance: LORAZEPAM
     Indication: NAUSEA
     Dosage: FREQ. TEXT: 1 TAB EVERY 8 HOURS
     Route: 048
  8. NORVASC [Concomitant]
     Active Substance: AMLODIPINE BESYLATE
     Route: 048
  9. DEXAMETHASONE. [Concomitant]
     Active Substance: DEXAMETHASONE
     Indication: PLASMA CELL MYELOMA
     Dosage: FREQ. TEXT: 1 TAB ON CARFILZOMIB DAYS?
     Route: 048
  10. SYNTHROID [Concomitant]
     Active Substance: LEVOTHYROXINE SODIUM
  11. LORAZEPAM. [Concomitant]
     Active Substance: LORAZEPAM
     Indication: ANXIETY
  12. NEURONTIN [Concomitant]
     Active Substance: GABAPENTIN
     Route: 048
  13. FLUCONAZOLE. [Concomitant]
     Active Substance: FLUCONAZOLE
     Route: 048
  14. CEFEPIME HCL SOLR [Concomitant]
     Dosage: FREQ. TEXT: 2 GM BIDX 1D; THEN 2 GM Q12 HRS
     Route: 042
     Dates: start: 20110403, end: 20110415
  15. CUBICIN SOLR [Concomitant]
     Dosage: FREQ. TEXT: ONCE
     Route: 042
     Dates: start: 20110408, end: 20110430
  16. LOPERAMIDE HCL [Concomitant]
     Active Substance: LOPERAMIDE HYDROCHLORIDE
     Indication: DIARRHOEA
     Dosage: FREQ. TEXT: 1 CAP EVERY 6 HOURS
  17. NEUPOGEN [Concomitant]
     Active Substance: FILGRASTIM
     Dosage: FREQ. TEXT: IF WBC { 2000
     Route: 058
     Dates: start: 20110214, end: 20110314
  18. FLAGYL [Concomitant]
     Active Substance: METRONIDAZOLE\METRONIDAZOLE HYDROCHLORIDE
     Route: 048
  19. SOLU-CORTEF SOLR [Concomitant]
     Route: 042
     Dates: start: 20110405, end: 20110531
  20. CARFILZOMIB [Suspect]
     Active Substance: CARFILZOMIB
     Dosage: FREQUENCY: 4 EVERY 21 DAYS; FREQ. TEXT: DAYS 8, 9, 15, 16
     Route: 042
  21. LEXAPRO [Concomitant]
     Active Substance: ESCITALOPRAM OXALATE
  22. PROTONIX [Concomitant]
     Active Substance: PANTOPRAZOLE SODIUM
     Route: 048
  23. ZOFRAN [Concomitant]
     Active Substance: ONDANSETRON HYDROCHLORIDE
     Indication: NAUSEA
     Dosage: FREQ. TEXT: 1 TAB EVERY 4 HOURS
     Route: 048
  24. METOPROLOL TARTRATE. [Concomitant]
     Active Substance: METOPROLOL TARTRATE
     Route: 048
  25. VALCYTE [Concomitant]
     Active Substance: VALGANCICLOVIR HYDROCHLORIDE
     Route: 048
  26. ATIVAN [Concomitant]
     Active Substance: LORAZEPAM
     Dosage: FREQ. TEXT: ONCE
     Route: 042
     Dates: start: 20110408, end: 20110409
  27. VANCOMYCIN HCL SOLR [Concomitant]
     Dosage: DAILY DOSE: ALTERNATE WITH FLAGYL; FREQ. TEXT: Q6 HR WITH JUICE OR WATER
  28. DOCUSATE SODIUM. [Concomitant]
     Active Substance: DOCUSATE SODIUM
     Indication: CONSTIPATION
     Dosage: FREQ. TEXT: 1 CAP TWICE DAILY
     Route: 048
  29. CVS SENNA [Concomitant]
     Indication: CONSTIPATION
     Dosage: FREQ. TEXT: 1 TAB TWICE DAILY
     Route: 048
  30. HYDRALAZINE HCL [Concomitant]
     Active Substance: HYDRALAZINE HYDROCHLORIDE
     Route: 048
  31. CEFEPIME HCL SOLR [Concomitant]
     Route: 042
     Dates: start: 20110329, end: 20110423
  32. THALOMID [Concomitant]
     Active Substance: THALIDOMIDE
     Route: 048
     Dates: start: 20110328, end: 20110401
  33. CLARITIN [Concomitant]
     Active Substance: LORATADINE
     Dosage: FREQ. TEXT: 1 TAB DAILY
     Route: 048
  34. TAMIFLU [Concomitant]
     Active Substance: OSELTAMIVIR PHOSPHATE
     Route: 048
  35. LEVAQUIN [Concomitant]
     Active Substance: LEVOFLOXACIN
     Route: 048
  36. PRED FORTE [Concomitant]
     Active Substance: PREDNISOLONE ACETATE
     Route: 047

REACTIONS (3)
  - Seizure [Recovered/Resolved]
  - Posterior reversible encephalopathy syndrome [Recovered/Resolved]
  - Pneumonia [Recovering/Resolving]

NARRATIVE: CASE EVENT DATE: 20110306
